FAERS Safety Report 7324452-2 (Version None)
Quarter: 2011Q1

REPORT INFORMATION
  Report Type: 
  Country: None (occurrence: None)
  Receive Date: 20110301
  Receipt Date: 20110224
  Transmission Date: 20110831
  Serious: No
  Sender: FDA-Public Use
  Company Number: US-PFIZER INC-2011005083

PATIENT
  Sex: Female
  Weight: 68.934 kg

DRUGS (2)
  1. SERTRALINE HYDROCHLORIDE [Suspect]
     Indication: ANXIETY
     Dosage: UNK
     Dates: start: 20100401
  2. SERTRALINE HYDROCHLORIDE [Suspect]
     Dosage: UNK

REACTIONS (2)
  - ANXIETY DISORDER DUE TO A GENERAL MEDICAL CONDITION [None]
  - ANXIETY [None]
